FAERS Safety Report 9182999 (Version 1)
Quarter: 2013Q1

REPORT INFORMATION
  Report Type: Spontaneous
  Country: IT (occurrence: US)
  Receive Date: 20130322
  Receipt Date: 20130322
  Transmission Date: 20140127
  Serious: No
  Sender: FDA-Public Use
  Company Number: US-BRISTOL-MYERS SQUIBB COMPANY-17192717

PATIENT
  Age: 77 Year
  Sex: Male

DRUGS (1)
  1. ERBITUX SOLN FOR INF [Suspect]
     Indication: COLORECTAL CANCER
     Dosage: STOPPED ON 17OCT2012 AND RESTARTED ON UNKNOWN DATE
     Route: 042
     Dates: start: 20120702

REACTIONS (1)
  - Rash pustular [Recovering/Resolving]
